FAERS Safety Report 8768094 (Version 1)
Quarter: 2012Q4

REPORT INFORMATION
  Report Type: 
  Country: US (occurrence: US)
  Receive Date: 20120905
  Receipt Date: 20120905
  Transmission Date: 20130627
  Serious: Yes (Hospitalization)
  Sender: FDA-Public Use
  Company Number: US-GLAXOSMITHKLINE-A0734602A

PATIENT
  Age: 49 Year
  Sex: Male
  Weight: 90.9 kg

DRUGS (10)
  1. AVANDIA [Suspect]
     Indication: TYPE 2 DIABETES MELLITUS
     Dosage: 8MG Twice per day
     Route: 048
     Dates: start: 2001, end: 2005
  2. AVANDAMET [Suspect]
     Indication: TYPE 2 DIABETES MELLITUS
     Dosage: 8MG Twice per day
     Route: 048
     Dates: start: 2001, end: 2005
  3. GLUCOTROL [Concomitant]
     Dosage: 10MG Twice per day
     Dates: start: 2001
  4. GLIPIZIDE [Concomitant]
     Dosage: 5MG In the morning
  5. HCTZ [Concomitant]
     Dosage: 12.5MG Per day
  6. ASA [Concomitant]
     Dosage: 325MG Per day
  7. NORVASC [Concomitant]
     Dosage: 5MG Per day
  8. PLAVIX [Concomitant]
  9. DIOVAN HCT [Concomitant]
  10. PLETAL [Concomitant]
     Dosage: 100MG Per day

REACTIONS (7)
  - Myocardial infarction [Not Recovered/Not Resolved]
  - Heart injury [Unknown]
  - Pain [Unknown]
  - Anxiety [Unknown]
  - Chest pain [Unknown]
  - Transient ischaemic attack [Unknown]
  - Cardiac failure congestive [Unknown]
